FAERS Safety Report 7130907-6 (Version None)
Quarter: 2010Q4

REPORT INFORMATION
  Report Type: 
  Country: None (occurrence: None)
  Receive Date: 20101101
  Receipt Date: 20100722
  Transmission Date: 20110411
  Serious: Yes (Hospitalization)
  Sender: FDA-Public Use
  Company Number: AMAG201000309

PATIENT
  Age: 88 Year
  Weight: 76.9 kg

DRUGS (10)
  1. FERAHEME [Suspect]
     Indication: IRON DEFICIENCY ANAEMIA
     Dosage: 510 MG, SINGLE, INTRAVENOUS
     Route: 042
     Dates: start: 20100721, end: 20100721
  2. ACETAMINOPHEN [Concomitant]
  3. BENADRYL [Concomitant]
  4. EMLA CREAM (LIDOCAINE, PRILOCAINE) [Concomitant]
  5. EPOGEN [Concomitant]
  6. FERRLECIT (FERRIC SODIUM GLUCONATE COMPLEX) [Concomitant]
  7. HEPARIN [Concomitant]
  8. PRILOSEC (OMEPRAZOLE) [Concomitant]
  9. TUMS (CALCIUM CARBONATE, MAGNESIUM CARBONATE, MAGNESIUM TRISILICATE) [Concomitant]
  10. ZEMPLAR [Concomitant]

REACTIONS (3)
  - DIARRHOEA [None]
  - HYPOTENSION [None]
  - RETCHING [None]
